FAERS Safety Report 4439003-X (Version None)
Quarter: 2004Q3

REPORT INFORMATION
  Report Type: 
  Country: None (occurrence: None)
  Receive Date: 20040901
  Receipt Date: 20040824
  Transmission Date: 20050211
  Serious: Yes (Hospitalization)
  Sender: FDA-Public Use
  Company Number: US-JNJFOC-20040701238

PATIENT
  Age: 50 Year
  Sex: Female

DRUGS (9)
  1. DURAGESIC [Suspect]
     Route: 062
     Dates: start: 20040301
  2. ACTIQ [Concomitant]
     Indication: PAIN
     Route: 049
  3. TRAMADOL HCL [Concomitant]
     Indication: PAIN
     Route: 049
  4. ZOLOFT [Concomitant]
     Route: 049
  5. VOLTAREN [Concomitant]
     Route: 049
  6. NEURONTIN [Concomitant]
     Route: 049
     Dates: start: 20010101
  7. ARMOUR [Concomitant]
     Indication: HYPOTHYROIDISM
     Route: 049
  8. AMBIEN [Concomitant]
     Route: 049
  9. ATIVAN [Concomitant]
     Indication: ANXIETY
     Dosage: AS NEEDED
     Route: 049

REACTIONS (4)
  - BLOOD PRESSURE INCREASED [None]
  - DYSPNOEA [None]
  - NAUSEA [None]
  - WEIGHT DECREASED [None]
